FAERS Safety Report 12268546 (Version 1)
Quarter: 2016Q2

REPORT INFORMATION
  Report Type: Spontaneous
  Country: US (occurrence: US)
  Receive Date: 20160414
  Receipt Date: 20160414
  Transmission Date: 20160815
  Serious: Yes (Hospitalization, Other)
  Sender: FDA-Public Use
  Company Number: US-AMGEN-USASP2016045438

PATIENT
  Sex: Female

DRUGS (1)
  1. CORLANOR [Suspect]
     Active Substance: IVABRADINE HYDROCHLORIDE
     Indication: SINUS TACHYCARDIA
     Dosage: 5 MG, BID
     Route: 048

REACTIONS (5)
  - Therapeutic procedure [Unknown]
  - Drug hypersensitivity [Not Recovered/Not Resolved]
  - Hospitalisation [Unknown]
  - Off label use [Unknown]
  - Hypotension [Unknown]
